FAERS Safety Report 19631699 (Version 4)
Quarter: 2022Q1

REPORT INFORMATION
  Report Type: Report from Study
  Country: DE (occurrence: DE)
  Receive Date: 20210729
  Receipt Date: 20220227
  Transmission Date: 20220423
  Serious: Yes (Life-Threatening, Hospitalization)
  Sender: FDA-Public Use
  Company Number: DE-JNJFOC-20210723572

PATIENT
  Age: 73 Year
  Sex: Male
  Weight: 84.7 kg

DRUGS (2)
  1. TRABECTEDIN [Suspect]
     Active Substance: TRABECTEDIN
     Indication: Soft tissue sarcoma
     Dosage: CYCLE 1
     Route: 042
     Dates: start: 20210615, end: 20210615
  2. AMLODIPINE [Concomitant]
     Active Substance: AMLODIPINE BESYLATE
     Indication: Hypertension
     Route: 065

REACTIONS (1)
  - Sepsis [Recovered/Resolved]

NARRATIVE: CASE EVENT DATE: 20210619
